FAERS Safety Report 5399755-1 (Version None)
Quarter: 2007Q3

REPORT INFORMATION
  Report Type: 
  Country: None (occurrence: None)
  Receive Date: 20070727
  Receipt Date: 20070717
  Transmission Date: 20080115
  Serious: Yes (Other)
  Sender: FDA-Public Use
  Company Number: US-PFIZER INC-2007060409

PATIENT
  Sex: Female
  Weight: 72.727 kg

DRUGS (2)
  1. CHANTIX [Suspect]
     Indication: SMOKING CESSATION THERAPY
     Dates: start: 20070401, end: 20070714
  2. REMICADE [Concomitant]
     Indication: RHEUMATOID ARTHRITIS

REACTIONS (2)
  - DECREASED APPETITE [None]
  - RHEUMATOID ARTHRITIS [None]
